FAERS Safety Report 16635439 (Version 1)
Quarter: 2019Q3

REPORT INFORMATION
  Report Type: Spontaneous
  Country: ZA (occurrence: ZA)
  Receive Date: 20190726
  Receipt Date: 20190726
  Transmission Date: 20191004
  Serious: Yes (Other)
  Sender: FDA-Public Use
  Company Number: ZA-MACLEODS PHARMACEUTICALS US LTD-MAC2018019217

PATIENT

DRUGS (32)
  1. PYRAZINAMIDE. [Suspect]
     Active Substance: PYRAZINAMIDE
     Dosage: STARTED ON 11 SEP 2018
     Route: 065
  2. ETHIONAMIDE [Suspect]
     Active Substance: ETHIONAMIDE
     Indication: TUBERCULOSIS
     Dosage: STARTED ON 19 FEB 2018 AND DISCONTINUED ON 24 JUL 2018
     Route: 048
  3. LEVOFLOX [Suspect]
     Active Substance: LEVOFLOXACIN
     Dosage: STARTED ON 08 AUG 2018 AND DISCONTINUED ON 28 AUG 2018
     Route: 065
  4. LEVOFLOX [Suspect]
     Active Substance: LEVOFLOXACIN
     Dosage: STARTED ON 06 SEP 2018
     Route: 065
  5. TERIZIDONE [Suspect]
     Active Substance: TERIZIDONE
     Indication: TUBERCULOSIS
     Dosage: STARTED ON 27 FEB 2018 AND DISCONTINUED ON 14 JUL 2018
     Route: 048
  6. LINEZOLID. [Suspect]
     Active Substance: LINEZOLID
     Dosage: STARTED ON 22 APRIL 2018 AND DISCONTINUED ON 24 JUL 2018
     Route: 048
  7. ISONIAZID. [Suspect]
     Active Substance: ISONIAZID
     Dosage: STARTED ON 20 AUG 2018 AND DISCONTINUED ON 27 AUG 2018
     Route: 065
  8. BEDAQUILINE [Suspect]
     Active Substance: BEDAQUILINE
     Dosage: STARTED ON 30 JUL 2018 AND DISCONTINUED ON 19 AUG 2018
     Route: 065
  9. CLOFAZIMINE [Suspect]
     Active Substance: CLOFAZIMINE
     Dosage: UNK
     Route: 065
  10. DELAMANID [Suspect]
     Active Substance: DELAMANID
     Indication: TUBERCULOSIS
     Dosage: STARTED ON 09 APR 2018 AND DISCONTINUED ON 24 JUL 2018
     Route: 048
  11. DELAMANID [Suspect]
     Active Substance: DELAMANID
     Dosage: STARTED ON 05 SEP 2018
     Route: 065
  12. AMINOSALICYLIC ACID [Suspect]
     Active Substance: AMINOSALICYLIC ACID
     Dosage: STARTED ON 23 AUG 2018 AND DISCONTINUED ON 27 AUG 2018
     Route: 065
  13. NEVIRAPINE. [Suspect]
     Active Substance: NEVIRAPINE
     Indication: ANTIRETROVIRAL THERAPY
     Dosage: UNK, ON 31 AUG 2018 DRUG DISCONTINUED
     Route: 065
  14. LINEZOLID. [Suspect]
     Active Substance: LINEZOLID
     Indication: TUBERCULOSIS
     Dosage: STARTED ON 22 FEB 2018 AND DISCONTINUED ON 28 MAR 2018
     Route: 048
  15. BEDAQUILINE [Suspect]
     Active Substance: BEDAQUILINE
     Indication: TUBERCULOSIS
     Dosage: STARTED ON 22 FEB 2018 AND DISCONTINUED ON 24 JUL 2018
     Route: 048
  16. AMINOSALICYLIC ACID [Suspect]
     Active Substance: AMINOSALICYLIC ACID
     Dosage: STARTED ON 15 SEP 2018
     Route: 065
  17. TENOFOVIR DISOPROXIL FUMARATE. [Concomitant]
     Active Substance: TENOFOVIR DISOPROXIL FUMARATE
     Indication: PRODUCT USED FOR UNKNOWN INDICATION
     Dosage: UNK
     Route: 065
     Dates: end: 20180831
  18. PYRIDOXINE [Concomitant]
     Active Substance: PYRIDOXINE
     Indication: PRODUCT USED FOR UNKNOWN INDICATION
     Dosage: UNK
     Route: 065
  19. PYRAZINAMIDE. [Suspect]
     Active Substance: PYRAZINAMIDE
     Dosage: STARTED ON 15 AUG 2018 AND DISCONTINUED ON 28 AUG 2018
     Route: 065
  20. MAGNESIUM AMINO ACID CHELATE [Concomitant]
     Active Substance: MAGNESIUM
     Indication: PRODUCT USED FOR UNKNOWN INDICATION
     Dosage: UNK
     Route: 065
  21. TERIZIDONE [Suspect]
     Active Substance: TERIZIDONE
     Dosage: STARTED ON 17 AUG 2018 AND DISCONTINUED ON 28 AUG 2018
     Route: 065
  22. LINEZOLID. [Suspect]
     Active Substance: LINEZOLID
     Dosage: STARTED ON 06 AUG 2018 AND DISCONTINUED ON 28 AUG 2018
     Route: 065
  23. ISONIAZID. [Suspect]
     Active Substance: ISONIAZID
     Dosage: STARTED ON 19 FEB 2018 AND DISCONTINUED ON 24 JUL 2018
     Route: 048
  24. AMINOSALICYLIC ACID [Suspect]
     Active Substance: AMINOSALICYLIC ACID
     Indication: TUBERCULOSIS
     Dosage: STARTED ON 22 FEB 2018 AND DISCONTINUED ON 24 JUL 2018
     Route: 048
  25. CLOFAZIMINE [Suspect]
     Active Substance: CLOFAZIMINE
     Dosage: STARTED ON 13 AUG 2018 AND DISCONTINUED ON 28 AUG 2018
     Route: 065
  26. LEVOFLOX [Suspect]
     Active Substance: LEVOFLOXACIN
     Indication: TUBERCULOSIS
     Dosage: STARTED ON 20 FEB 2018 AND DISCONTINUED ON 24 JUL 2018
     Route: 048
  27. FERROUS SULFATE. [Concomitant]
     Active Substance: FERROUS SULFATE
     Dosage: UNK
     Route: 065
  28. PYRAZINAMIDE. [Suspect]
     Active Substance: PYRAZINAMIDE
     Indication: TUBERCULOSIS
     Dosage: ON 19 FEB 2018 PATIENT STARTED 1.75 GRAM, QD AND DISCONTINUED ON 24 JUL 2018
     Route: 048
  29. CLOFAZIMINE [Suspect]
     Active Substance: CLOFAZIMINE
     Indication: TUBERCULOSIS
     Dosage: STARTED ON 19 MAR 2018 AND DISCONTINUED ON 24 JUL 2018
     Route: 048
     Dates: start: 20180319, end: 20180724
  30. DELAMANID [Suspect]
     Active Substance: DELAMANID
     Dosage: STARTED ON 02 AUG 2018 AND DISCONTINUED ON 28 AUG 2018
     Route: 065
  31. EMTRICITABINE [Concomitant]
     Active Substance: EMTRICITABINE
     Indication: PRODUCT USED FOR UNKNOWN INDICATION
     Dosage: UNK
     Route: 065
     Dates: end: 20180831
  32. FERROUS SULFATE. [Concomitant]
     Active Substance: FERROUS SULFATE
     Indication: PRODUCT USED FOR UNKNOWN INDICATION
     Dosage: UNK
     Route: 065

REACTIONS (2)
  - Seborrhoeic dermatitis [Recovered/Resolved]
  - Deep vein thrombosis [Not Recovered/Not Resolved]
